FAERS Safety Report 18912439 (Version 5)
Quarter: 2022Q1

REPORT INFORMATION
  Report Type: Report from Study
  Country: US (occurrence: US)
  Receive Date: 20210218
  Receipt Date: 20220212
  Transmission Date: 20220423
  Serious: Yes (Hospitalization, Other)
  Sender: FDA-Public Use
  Company Number: US-TAKEDA-US202005307

PATIENT
  Sex: Male
  Weight: 105 kg

DRUGS (20)
  1. HUMAN C1-ESTERASE INHIBITOR [Suspect]
     Active Substance: HUMAN C1-ESTERASE INHIBITOR
     Indication: Immune system disorder
     Dosage: 1000 INTERNATIONAL UNIT, Q72H
     Route: 042
     Dates: start: 20150213
  2. HUMAN C1-ESTERASE INHIBITOR [Suspect]
     Active Substance: HUMAN C1-ESTERASE INHIBITOR
     Indication: Immune system disorder
     Dosage: 1000 INTERNATIONAL UNIT, Q72H
     Route: 042
     Dates: start: 20150213
  3. HUMAN C1-ESTERASE INHIBITOR [Suspect]
     Active Substance: HUMAN C1-ESTERASE INHIBITOR
     Indication: Immune system disorder
     Dosage: 1000 INTERNATIONAL UNIT, Q72H
     Route: 042
     Dates: start: 20150213
  4. HUMAN C1-ESTERASE INHIBITOR [Suspect]
     Active Substance: HUMAN C1-ESTERASE INHIBITOR
     Dosage: 1000 INTERNATIONAL UNIT
     Route: 042
     Dates: start: 20190731
  5. HUMAN C1-ESTERASE INHIBITOR [Suspect]
     Active Substance: HUMAN C1-ESTERASE INHIBITOR
     Dosage: 1000 INTERNATIONAL UNIT
     Route: 042
     Dates: start: 20190731
  6. HUMAN C1-ESTERASE INHIBITOR [Suspect]
     Active Substance: HUMAN C1-ESTERASE INHIBITOR
     Dosage: 1000 INTERNATIONAL UNIT
     Route: 042
     Dates: start: 20190731
  7. KALBITOR [Concomitant]
     Active Substance: ECALLANTIDE
     Dosage: UNK
     Route: 065
  8. HEPARIN [Concomitant]
     Active Substance: HEPARIN SODIUM
     Dosage: UNK
     Route: 065
  9. SODIUM CHLORIDE [Concomitant]
     Active Substance: SODIUM CHLORIDE
     Dosage: UNK
     Route: 065
  10. STERILE WATER [Concomitant]
     Active Substance: WATER
     Dosage: UNK
     Route: 065
  11. EPINEPHRINE [Concomitant]
     Active Substance: EPINEPHRINE
     Dosage: UNK
     Route: 065
  12. CLONAZEPAM [Concomitant]
     Active Substance: CLONAZEPAM
     Dosage: UNK
     Route: 065
  13. NIGHT TIME DAY TIME [Concomitant]
     Dosage: UNK
     Route: 065
  14. CARVEDILOL [Concomitant]
     Active Substance: CARVEDILOL
     Dosage: UNK
     Route: 065
  15. ALLOPURINOL [Concomitant]
     Active Substance: ALLOPURINOL
     Dosage: UNK
     Route: 065
  16. OMEPRAZOLE [Concomitant]
     Active Substance: OMEPRAZOLE
     Dosage: UNK
     Route: 065
  17. CELECOXIB [Concomitant]
     Active Substance: CELECOXIB
     Dosage: UNK
     Route: 065
  18. POTASSIUM CHLORIDE [Concomitant]
     Active Substance: POTASSIUM CHLORIDE
     Dosage: UNK
     Route: 065
  19. NIFEDIPINE [Concomitant]
     Active Substance: NIFEDIPINE
     Dosage: UNK
     Route: 065
  20. LIDOCAINE [Concomitant]
     Active Substance: LIDOCAINE
     Dosage: UNK
     Route: 065

REACTIONS (8)
  - Pneumonia [Unknown]
  - Influenza [Unknown]
  - Sinusitis [Unknown]
  - Injury [Unknown]
  - Stress [Unknown]
  - Hereditary angioedema [Unknown]
  - Inappropriate schedule of product administration [Unknown]
  - Product availability issue [Unknown]
